FAERS Safety Report 4883447-9 (Version None)
Quarter: 2006Q1

REPORT INFORMATION
  Report Type: 
  Country: None (occurrence: None)
  Receive Date: 20060118
  Receipt Date: 20051005
  Transmission Date: 20060701
  Serious: Yes (Death)
  Sender: FDA-Public Use
  Company Number: US-MERCK-0510USA04278

PATIENT
  Age: 27 Year
  Sex: Female
  Weight: 59 kg

DRUGS (20)
  1. VIOXX [Suspect]
     Indication: ANALGESIC EFFECT
     Route: 048
     Dates: start: 20010814, end: 20020101
  2. VIOXX [Suspect]
     Route: 048
     Dates: start: 20021001, end: 20030711
  3. VIOXX [Suspect]
     Indication: MUSCLE SPASMS
     Route: 048
     Dates: start: 20010814, end: 20020101
  4. VIOXX [Suspect]
     Route: 048
     Dates: start: 20021001, end: 20030711
  5. RETIN-A [Concomitant]
     Route: 061
  6. BENZOYL PEROXIDE [Concomitant]
     Route: 065
  7. CALCIUM LACTATE [Concomitant]
     Route: 065
  8. VITAMINS (UNSPECIFIED) [Concomitant]
     Route: 065
  9. CYCLOBENZAPRINE HYDROCHLORIDE [Concomitant]
     Route: 065
  10. IBUPROFEN [Concomitant]
     Route: 065
  11. TRAZODONE HYDROCHLORIDE [Concomitant]
     Route: 065
  12. DOCUSATE SODIUM [Concomitant]
     Route: 065
  13. SERTRALINE HYDROCHLORIDE [Concomitant]
     Route: 065
  14. ALUMINUM ACETATE [Concomitant]
     Route: 065
  15. CEPHALEXIN [Concomitant]
     Route: 065
  16. ERYTHROMYCIN [Concomitant]
     Route: 065
  17. ACYCLOVIR [Concomitant]
     Route: 065
  18. TETRACYCLINE [Concomitant]
     Route: 048
     Dates: start: 20021001
  19. TERBINAFINE [Concomitant]
     Route: 065
  20. ASCORBIC ACID [Concomitant]
     Route: 065

REACTIONS (2)
  - GOITRE [None]
  - MYOCARDIAL INFARCTION [None]
